FAERS Safety Report 9738765 (Version 3)
Quarter: 2014Q2

REPORT INFORMATION
  Report Type: Report from Study
  Country: GB (occurrence: GB)
  Receive Date: 20131209
  Receipt Date: 20140404
  Transmission Date: 20141212
  Serious: Yes (Hospitalization, Other)
  Sender: FDA-Public Use
  Company Number: GB-JNJFOC-20131118342

PATIENT
  Age: 67 Year
  Sex: Male

DRUGS (2)
  1. STELARA [Suspect]
     Indication: PSORIASIS
     Dosage: ON WEEK 4 AND 12
     Route: 058
  2. STELARA [Suspect]
     Indication: PSORIASIS
     Route: 058

REACTIONS (6)
  - Fall [Unknown]
  - Visual acuity reduced [Unknown]
  - Adverse event [Unknown]
  - Pneumonia [Unknown]
  - Myocardial infarction [Unknown]
  - Pulmonary thrombosis [Unknown]
